FAERS Safety Report 6313842-2 (Version None)
Quarter: 2009Q3

REPORT INFORMATION
  Report Type: 
  Country: None (occurrence: None)
  Receive Date: 20090817
  Receipt Date: 20090817
  Transmission Date: 20100115
  Serious: No
  Sender: FDA-Public Use
  Company Number: None

PATIENT
  Age: 49 Year
  Sex: Male
  Weight: 81.1939 kg

DRUGS (2)
  1. INVEGA [Suspect]
     Indication: BIPOLAR DISORDER
     Dosage: 1 TABLET 1/DAY PO
     Route: 048
     Dates: start: 20081112, end: 20081218
  2. GEODON [Suspect]
     Indication: BIPOLAR DISORDER
     Dosage: 1 TABLET 1/DAY PO
     Route: 048
     Dates: start: 20050826, end: 20080324

REACTIONS (6)
  - EXTRAPYRAMIDAL DISORDER [None]
  - IMPAIRED DRIVING ABILITY [None]
  - MUSCULOSKELETAL STIFFNESS [None]
  - RESTLESSNESS [None]
  - TARDIVE DYSKINESIA [None]
  - TREMOR [None]
